FAERS Safety Report 16388074 (Version 1)
Quarter: 2019Q2

REPORT INFORMATION
  Report Type: Spontaneous
  Country: HU (occurrence: HU)
  Receive Date: 20190604
  Receipt Date: 20190604
  Transmission Date: 20190711
  Serious: Yes (Death, Hospitalization)
  Sender: FDA-Public Use
  Company Number: HU-MYLANLABS-2019M1052852

PATIENT
  Age: 48 Year
  Sex: Male

DRUGS (4)
  1. FOLINIC ACID [Concomitant]
     Active Substance: LEUCOVORIN
     Indication: ABDOMINAL NEOPLASM
     Dosage: UNK
     Route: 065
  2. OXALIPLATIN. [Suspect]
     Active Substance: OXALIPLATIN
     Indication: ABDOMINAL NEOPLASM
     Dosage: UNK
     Route: 065
  3. FLUOROURACIL. [Suspect]
     Active Substance: FLUOROURACIL
     Indication: ABDOMINAL NEOPLASM
     Dosage: UNK
     Route: 065
  4. PANITUMUMAB [Concomitant]
     Active Substance: PANITUMUMAB
     Indication: SUPPLEMENTATION THERAPY
     Dosage: UNK
     Route: 065

REACTIONS (5)
  - Metastases to abdominal wall [Fatal]
  - Product use in unapproved indication [Unknown]
  - Musculoskeletal chest pain [Unknown]
  - Metastases to liver [Fatal]
  - Emphysema [Unknown]
